FAERS Safety Report 12093681 (Version 1)
Quarter: 2016Q1

REPORT INFORMATION
  Report Type: Spontaneous
  Country: US (occurrence: US)
  Receive Date: 20160219
  Receipt Date: 20160219
  Transmission Date: 20160526
  Serious: No
  Sender: FDA-Public Use
  Company Number: US-APOTEX-2015AP010528

PATIENT

DRUGS (2)
  1. SUMATRIPTAN TABLETS USP [Suspect]
     Active Substance: SUMATRIPTAN
     Indication: MIGRAINE
  2. SUMATRIPTAN TABLETS USP [Suspect]
     Active Substance: SUMATRIPTAN
     Indication: HYPOTENSION
     Dosage: 50 MG, UNK
     Route: 065

REACTIONS (3)
  - Drug ineffective [Unknown]
  - Drug ineffective for unapproved indication [Unknown]
  - Off label use [Unknown]
